FAERS Safety Report 24416356 (Version 1)
Quarter: 2024Q4

REPORT INFORMATION
  Report Type: Spontaneous
  Country: JP (occurrence: JP)
  Receive Date: 20241009
  Receipt Date: 20241009
  Transmission Date: 20250114
  Serious: Yes (Other)
  Sender: PFIZER
  Company Number: JP-PFIZER INC-202400271092

PATIENT

DRUGS (1)
  1. RHEUMATREX [Suspect]
     Active Substance: METHOTREXATE SODIUM
     Indication: Rheumatoid arthritis
     Dosage: 6 MG
     Route: 048

REACTIONS (1)
  - Respiratory tract operation [Unknown]
